FAERS Safety Report 8564550-9 (Version None)
Quarter: 2012Q3

REPORT INFORMATION
  Report Type: 
  Country: None (occurrence: None)
  Receive Date: 20120803
  Receipt Date: 20120731
  Transmission Date: 20120928
  Serious: No
  Sender: FDA-Public Use
  Company Number: US-009507513-1208USA000559

PATIENT

DRUGS (1)
  1. TIMOPTIC IN OCUDOSE [Suspect]
     Dosage: UNK
     Route: 047

REACTIONS (1)
  - DRUG INEFFECTIVE [None]
